FAERS Safety Report 4543326-3 (Version None)
Quarter: 2004Q4

REPORT INFORMATION
  Report Type: 
  Country: None (occurrence: None)
  Receive Date: 20041229
  Receipt Date: 20041220
  Transmission Date: 20050328
  Serious: Yes (Hospitalization)
  Sender: FDA-Public Use
  Company Number: 2004-DE-06301GD

PATIENT
  Age: 63 Year
  Sex: Male

DRUGS (2)
  1. FUROSEMIDE [Suspect]
     Indication: HYPERTENSION
     Dosage: NR (NR), NR
  2. ENALAPRIL (ENALAPRIL MALEATE) [Suspect]
     Indication: HYPERTENSION
     Dosage: NR (NR), NR

REACTIONS (1)
  - THERAPY NON-RESPONDER [None]
